FAERS Safety Report 23977968 (Version 2)
Quarter: 2024Q3

REPORT INFORMATION
  Report Type: Spontaneous
  Country: JP (occurrence: JP)
  Receive Date: 20240614
  Receipt Date: 20240723
  Transmission Date: 20241016
  Serious: Yes (Death)
  Sender: EISAI
  Company Number: JP-Eisai-202403171_HAL-STS_P_1

PATIENT
  Age: 71 Year
  Sex: Female
  Weight: 36 kg

DRUGS (1)
  1. HALAVEN [Suspect]
     Active Substance: ERIBULIN MESYLATE
     Indication: Uterine leiomyosarcoma
     Route: 041
     Dates: start: 20230907, end: 20231011

REACTIONS (9)
  - Death [Fatal]
  - Decreased appetite [Unknown]
  - Arthralgia [Unknown]
  - Altered state of consciousness [Unknown]
  - Hypotension [Unknown]
  - Anaemia [Unknown]
  - White blood cell count decreased [Unknown]
  - Dehydration [Unknown]
  - Pyrexia [Unknown]

NARRATIVE: CASE EVENT DATE: 20231005
